FAERS Safety Report 8624082-6 (Version None)
Quarter: 2012Q3

REPORT INFORMATION
  Report Type: 
  Country: None (occurrence: None)
  Receive Date: 20120824
  Receipt Date: 20120824
  Transmission Date: 20120928
  Serious: Yes (Life-Threatening)
  Sender: FDA-Public Use
  Company Number: None

PATIENT
  Sex: Male

DRUGS (1)
  1. ZYTIGA [Suspect]
     Dosage: 4-250 MG, QD, PO
     Route: 048
     Dates: start: 20120522, end: 20120723

REACTIONS (1)
  - MYOCARDIAL INFARCTION [None]
